FAERS Safety Report 21675874 (Version 1)
Quarter: 2022Q4

REPORT INFORMATION
  Report Type: Spontaneous
  Country: US (occurrence: None)
  Receive Date: 20221202
  Receipt Date: 20221202
  Transmission Date: 20230113
  Serious: Yes (Life-Threatening, Hospitalization, Disabling)
  Sender: FDA-Public Use
  Company Number: None

PATIENT
  Age: 37 Year
  Sex: Female
  Weight: 99 kg

DRUGS (3)
  1. PROPRANOLOL [Suspect]
     Active Substance: PROPRANOLOL HYDROCHLORIDE
     Indication: Anxiety
     Dosage: FREQUENCY : TWICE A DAY;?
     Route: 048
     Dates: start: 20210101, end: 20210421
  2. PROPRANOLOL [Suspect]
     Active Substance: PROPRANOLOL HYDROCHLORIDE
     Indication: Panic attack
  3. DEVICE [Concomitant]
     Active Substance: DEVICE

REACTIONS (3)
  - Bradycardia [None]
  - Cardiac pacemaker insertion [None]
  - Therapy cessation [None]

NARRATIVE: CASE EVENT DATE: 20210421
